FAERS Safety Report 15368576 (Version 1)
Quarter: 2018Q3

REPORT INFORMATION
  Report Type: Spontaneous
  Country: US (occurrence: US)
  Receive Date: 20180911
  Receipt Date: 20180911
  Transmission Date: 20181010
  Serious: No
  Sender: FDA-Public Use
  Company Number: US-UNITED THERAPEUTICS-UNT-2018-013457

PATIENT
  Age: 65 Year
  Sex: Female
  Weight: 58.96 kg

DRUGS (2)
  1. TYVASO [Suspect]
     Active Substance: TREPROSTINIL
     Indication: PULMONARY ARTERIAL HYPERTENSION
     Dosage: 18?54 MICROGRAMS, QID
     Dates: start: 20180822
  2. TYVASO [Suspect]
     Active Substance: TREPROSTINIL
     Dosage: 18 ?G, QID

REACTIONS (9)
  - Productive cough [Unknown]
  - Lethargy [Unknown]
  - Respiratory tract congestion [Unknown]
  - Sputum increased [Unknown]
  - Nausea [Unknown]
  - Condition aggravated [Unknown]
  - Dyspnoea [Unknown]
  - Sputum retention [Unknown]
  - Fatigue [Not Recovered/Not Resolved]

NARRATIVE: CASE EVENT DATE: 2018
